FAERS Safety Report 22520574 (Version 1)
Quarter: 2023Q2

REPORT INFORMATION
  Report Type: Spontaneous
  Country: US (occurrence: US)
  Receive Date: 20230605
  Receipt Date: 20230605
  Transmission Date: 20230722
  Serious: Yes (Other)
  Sender: FDA-Public Use
  Company Number: US-INNOCOLL BIOTHERAPEUTICS-2023INN00004

PATIENT
  Age: 68 Year
  Sex: Female

DRUGS (2)
  1. BUPIVACAINE [Suspect]
     Active Substance: BUPIVACAINE
     Indication: Procedural pain
     Dosage: 5 ML/HR VIA ON_Q PUMP
  2. BUPIVACAINE [Suspect]
     Active Substance: BUPIVACAINE
     Indication: Procedural pain
     Dosage: 5 ML/HR VIA ON_Q PUMP

REACTIONS (1)
  - Drug-induced liver injury [Recovering/Resolving]
